FAERS Safety Report 17400472 (Version 1)
Quarter: 2020Q1

REPORT INFORMATION
  Report Type: Spontaneous
  Country: AU (occurrence: AU)
  Receive Date: 20200211
  Receipt Date: 20200211
  Transmission Date: 20200409
  Serious: Yes (Death, Other)
  Sender: FDA-Public Use
  Company Number: AU-ASTELLAS-2019US049386

PATIENT
  Age: 78 Year
  Sex: Male

DRUGS (1)
  1. XTANDI [Suspect]
     Active Substance: ENZALUTAMIDE
     Indication: PROSTATE CANCER
     Dosage: 160 MG, ONCE DAILY (FOUR 40 MG CAPSULES)
     Route: 065
     Dates: start: 20191119

REACTIONS (4)
  - Acute myocardial infarction [Unknown]
  - Death [Fatal]
  - Dizziness [Unknown]
  - Hot flush [Unknown]
